FAERS Safety Report 9792541 (Version 1)
Quarter: 2014Q1

REPORT INFORMATION
  Report Type: Spontaneous
  Country: US (occurrence: US)
  Receive Date: 20140102
  Receipt Date: 20140102
  Transmission Date: 20141002
  Serious: No
  Sender: FDA-Public Use
  Company Number: US-SANOFI-AVENTIS-2013SA094680

PATIENT
  Age: 72 Year
  Sex: Male

DRUGS (12)
  1. AUBAGIO [Suspect]
     Indication: MULTIPLE SCLEROSIS
     Route: 048
     Dates: start: 20130719
  2. AMANTADINE [Concomitant]
  3. FAMPRIDINE [Concomitant]
  4. VITAMIN D [Concomitant]
  5. ADVIL [Concomitant]
  6. TADALAFIL [Concomitant]
  7. UROXATRAL [Concomitant]
  8. ALLOPURINOL [Concomitant]
  9. SIMVASTATIN [Concomitant]
  10. WELCHOL [Concomitant]
  11. FISH OIL [Concomitant]
  12. AVONEX [Concomitant]

REACTIONS (3)
  - Local swelling [Recovering/Resolving]
  - Rash [Recovering/Resolving]
  - Skin exfoliation [Recovering/Resolving]
